FAERS Safety Report 13585532 (Version 1)
Quarter: 2017Q2

REPORT INFORMATION
  Report Type: Spontaneous
  Country: US (occurrence: US)
  Receive Date: 20170526
  Receipt Date: 20170526
  Transmission Date: 20170830
  Serious: Yes (Disabling)
  Sender: FDA-Public Use
  Company Number: None

PATIENT
  Age: 81 Year
  Sex: Female
  Weight: 90.8 kg

DRUGS (22)
  1. AMIODARONE [Suspect]
     Active Substance: AMIODARONE
     Indication: HEART RATE DECREASED
     Dosage: 200 MG 1 PILL ONCE DAILY BY MOUTH
     Route: 048
     Dates: start: 20170107, end: 20170415
  2. ADVAIR HFA [Concomitant]
     Active Substance: FLUTICASONE PROPIONATE\SALMETEROL XINAFOATE
  3. NAPROXEN. [Concomitant]
     Active Substance: NAPROXEN
  4. GABAPENTIN. [Concomitant]
     Active Substance: GABAPENTIN
  5. METFORMIN [Concomitant]
     Active Substance: METFORMIN HYDROCHLORIDE
  6. CARVEDILOL. [Concomitant]
     Active Substance: CARVEDILOL
  7. OXYBUTEN [Concomitant]
  8. VITAMIN D3 [Concomitant]
     Active Substance: CHOLECALCIFEROL
  9. LASIX (FINASTERIDE) [Concomitant]
  10. MEGA RED KRILL OIL [Concomitant]
  11. AMIODARONE [Suspect]
     Active Substance: AMIODARONE
     Indication: ATRIAL FIBRILLATION
     Dosage: 200 MG 1 PILL ONCE DAILY BY MOUTH
     Route: 048
     Dates: start: 20170107, end: 20170415
  12. FOLATE [Concomitant]
     Active Substance: FOLATE SODIUM
  13. THYROID (LEVOTHYROXIN) [Concomitant]
  14. MAGNESIUM [Concomitant]
     Active Substance: MAGNESIUM
  15. WARFARIN [Concomitant]
     Active Substance: WARFARIN
  16. ISOSORBIDE. [Concomitant]
     Active Substance: ISOSORBIDE
  17. CALTRATE WITH VITAMIN D [Concomitant]
     Active Substance: CALCIUM CARBONATE\CHOLECALCIFEROL
  18. ALBUTEROL INHALATION SOLUTION [Concomitant]
     Active Substance: ALBUTEROL
  19. VITAMIN B12 [Concomitant]
     Active Substance: CYANOCOBALAMIN
  20. OMEPRAZOL [Concomitant]
     Active Substance: OMEPRAZOLE
  21. MONTELUKAST [Concomitant]
     Active Substance: MONTELUKAST SODIUM
  22. PROBIOTICS [Concomitant]
     Active Substance: PROBIOTICS NOS

REACTIONS (4)
  - Lung disorder [None]
  - Asthma [None]
  - Asthenia [None]
  - Abasia [None]

NARRATIVE: CASE EVENT DATE: 20170107
